FAERS Safety Report 8408989 (Version 2)
Quarter: 2013Q2

REPORT INFORMATION
  Report Type: Spontaneous
  Country: US (occurrence: None)
  Receive Date: 20111227
  Receipt Date: 20120426
  Transmission Date: 20140414
  Serious: No
  Sender: FDA-Public Use
  Company Number: PHEH2011US06200

PATIENT
  Age: 58 Year
  Sex: Female

DRUGS (8)
  1. GILENYA [Suspect]
     Indication: MULTIPLE SCLEROSIS
     Dosage: 0.5 MG, QD, ORAL
     Route: 048
     Dates: start: 20110506
  2. MOBIC (MELOXICAM) [Concomitant]
  3. NEURONTIN [Concomitant]
  4. EFFEXOR (VENLAFAXINE HYDROCHLORIDE) [Concomitant]
  5. WELLBUTRIN (BUPROPION HYDROCHLORIDE) [Concomitant]
  6. CALCIUM (CALCIUM) [Concomitant]
  7. MIMPEX [Concomitant]
  8. ANTIBIOTICS [Concomitant]

REACTIONS (13)
  - CONJUNCTIVITIS [None]
  - PHARYNGITIS [None]
  - Insomnia [None]
  - Paraesthesia [None]
  - White blood cell count decreased [None]
  - Sinusitis [None]
  - Flushing [None]
  - Paraesthesia [None]
  - Sensory disturbance [None]
  - Constipation [None]
  - Abnormal faeces [None]
  - Liver function test abnormal [None]
  - Multiple sclerosis [None]
